FAERS Safety Report 4967740-7 (Version None)
Quarter: 2006Q2

REPORT INFORMATION
  Report Type: 
  Country: None (occurrence: None)
  Receive Date: 20060404
  Receipt Date: 20060328
  Transmission Date: 20061013
  Serious: Yes (Death)
  Sender: FDA-Public Use
  Company Number: 2006-140446-NL

PATIENT
  Age: 99 Year
  Sex: Male

DRUGS (4)
  1. MIRTAZAPINE [Suspect]
     Indication: DEPRESSION
     Dosage: 30 MG QD ORAL
     Route: 048
     Dates: start: 20050520, end: 20050630
  2. PREDNISONE [Suspect]
     Dosage: 12.5 MG, QD ORAL
     Route: 048
  3. ACETYLSALICYLIC ACID SRT [Concomitant]
  4. OXYCODONE HCL [Concomitant]

REACTIONS (3)
  - NEUTROPENIA [None]
  - PNEUMONIA [None]
  - SEPSIS [None]
